FAERS Safety Report 7076223-2 (Version None)
Quarter: 2010Q4

REPORT INFORMATION
  Report Type: 
  Country: None (occurrence: None)
  Receive Date: 20101101
  Receipt Date: 20101021
  Transmission Date: 20110411
  Serious: Yes (Hospitalization)
  Sender: FDA-Public Use
  Company Number: BR-US-EMD SERONO, INC.-7024205

PATIENT
  Sex: Female

DRUGS (7)
  1. REBIF [Suspect]
     Indication: RELAPSING-REMITTING MULTIPLE SCLEROSIS
     Dates: start: 20090817, end: 20100301
  2. PARACETAMOL [Concomitant]
  3. ETNA [Concomitant]
  4. MIOSAN [Concomitant]
  5. AMATO [Concomitant]
  6. KELLY [Concomitant]
  7. BACLOFEN [Concomitant]

REACTIONS (3)
  - BONE CYST [None]
  - BONE DENSITY ABNORMAL [None]
  - OSTEONECROSIS [None]
